FAERS Safety Report 6183692-9 (Version None)
Quarter: 2009Q2

REPORT INFORMATION
  Report Type: 
  Country: None (occurrence: None)
  Receive Date: 20090508
  Receipt Date: 20090424
  Transmission Date: 20091009
  Serious: Yes (Hospitalization)
  Sender: FDA-Public Use
  Company Number: CA-PFIZER INC-2009200065

PATIENT
  Age: 75 Year

DRUGS (22)
  1. BLINDED *PLACEBO [Suspect]
     Indication: CARDIAC FAILURE CONGESTIVE
     Dosage: 1 DF, ALTERNATE DAY
     Route: 048
     Dates: start: 20090120, end: 20090212
  2. BLINDED EPLERENONE [Suspect]
     Indication: CARDIAC FAILURE CONGESTIVE
     Dosage: 1 DF, ALTERNATE DAY
     Route: 048
     Dates: start: 20090120, end: 20090212
  3. BLINDED *PLACEBO [Suspect]
     Dosage: 1 DF, 1X/DAY
     Route: 048
     Dates: start: 20090213
  4. BLINDED EPLERENONE [Suspect]
     Dosage: 1 DF, 1X/DAY
     Route: 048
     Dates: start: 20090213
  5. PERINDOPRIL [Concomitant]
     Dosage: 8 MG, 1X/DAY
     Route: 048
     Dates: start: 20070201, end: 20090327
  6. PERINDOPRIL [Concomitant]
     Dosage: UNK
     Dates: start: 20090328
  7. CARVEDILOL [Concomitant]
     Dosage: 25 MG, 2X/DAY
     Route: 048
     Dates: start: 20070201
  8. FUROSEMIDE [Concomitant]
     Dosage: 20 MG, 1X/DAY
     Route: 048
     Dates: start: 20070201
  9. CORDARONE [Concomitant]
     Dosage: 200 MG, 1X/DAY
     Route: 048
     Dates: start: 20080817
  10. EZETIMIBE [Concomitant]
     Dosage: 10 MG, 1X/DAY
     Route: 048
     Dates: start: 20060101
  11. WARFARIN [Concomitant]
     Dosage: UNK MG, 1X/DAY
     Route: 048
     Dates: start: 20081201
  12. ROSUVASTATIN [Concomitant]
     Dosage: 20 MG, 1X/DAY
     Route: 048
     Dates: start: 20060101
  13. OMEPRAZOLE [Concomitant]
     Dosage: 20 MG, 1X/DAY
     Route: 048
     Dates: start: 19950101
  14. ZOPICLONE [Concomitant]
     Dosage: 7.5 MG, AS NEEDED
     Route: 048
     Dates: start: 20060101
  15. DIAZEPAM [Concomitant]
     Dosage: 5 MG, AS NEEDED
     Route: 048
     Dates: start: 19530101
  16. NITROGLYCERIN [Concomitant]
     Dosage: 0.3 MG, AS NEEDED
     Route: 060
     Dates: start: 19840101
  17. VITAMIN B COMPLEX CAP [Concomitant]
     Dosage: 50 MG, 1X/DAY
     Route: 048
     Dates: start: 19900101
  18. MULTI-VITAMINS [Concomitant]
     Dosage: UNK
     Route: 048
     Dates: start: 19900101
  19. COENZYME Q10 [Concomitant]
     Dosage: 30 MG, 1X/DAY
     Route: 048
     Dates: start: 19900101
  20. VITAMIN D [Concomitant]
     Dosage: 400 IU, 1X/DAY
     Route: 048
     Dates: start: 19900101
  21. CALCIUM [Concomitant]
     Dosage: UNK
     Route: 048
     Dates: start: 19900101
  22. MAGNESIUM [Concomitant]
     Dosage: UNK
     Route: 048
     Dates: start: 19900101

REACTIONS (5)
  - HEPATIC ENZYME INCREASED [None]
  - HYPERKALAEMIA [None]
  - INTERNATIONAL NORMALISED RATIO INCREASED [None]
  - MUSCLE SPASMS [None]
  - RENAL IMPAIRMENT [None]
